FAERS Safety Report 15044552 (Version 1)
Quarter: 2018Q2

REPORT INFORMATION
  Report Type: Report from Study
  Country: US (occurrence: US)
  Receive Date: 20180621
  Receipt Date: 20180621
  Transmission Date: 20180711
  Serious: Yes (Other)
  Sender: FDA-Public Use
  Company Number: US-BAYER-2018-046445

PATIENT
  Age: 78 Year
  Sex: Male

DRUGS (3)
  1. NEXAVAR [Suspect]
     Active Substance: SORAFENIB
     Indication: HEPATIC CANCER
  2. NEXAVAR [Suspect]
     Active Substance: SORAFENIB
     Indication: HEPATOCELLULAR CARCINOMA
     Dosage: 400 MG, BID
     Route: 048
     Dates: start: 20180302
  3. NEXAVAR [Suspect]
     Active Substance: SORAFENIB
     Indication: COLON CANCER

REACTIONS (18)
  - Tumour marker increased [None]
  - Fatigue [Recovering/Resolving]
  - Blister [Not Recovered/Not Resolved]
  - Pre-existing condition improved [Recovering/Resolving]
  - Exercise tolerance decreased [None]
  - Exercise tolerance decreased [Not Recovered/Not Resolved]
  - Confusional state [Not Recovered/Not Resolved]
  - Pre-existing condition improved [Recovering/Resolving]
  - Pain in extremity [Recovering/Resolving]
  - Nausea [Recovered/Resolved]
  - Constipation [Recovering/Resolving]
  - Blister [Recovering/Resolving]
  - Blood pressure increased [Recovering/Resolving]
  - Neoplasm [None]
  - Dry skin [Recovering/Resolving]
  - Decreased appetite [Recovering/Resolving]
  - Weight decreased [Unknown]
  - Erythema [Recovering/Resolving]

NARRATIVE: CASE EVENT DATE: 2018
